FAERS Safety Report 9221683 (Version 1)
Quarter: 2013Q2

REPORT INFORMATION
  Report Type: Spontaneous
  Country: FR (occurrence: None)
  Receive Date: 20130408
  Receipt Date: 20130408
  Transmission Date: 20140414
  Serious: Yes (Other)
  Sender: FDA-Public Use
  Company Number: 2013FR0108

PATIENT
  Sex: Female

DRUGS (1)
  1. KINERET (ANAKINRA), NOT AVAILABLE [Suspect]
     Indication: TEMPORAL ARTERITIS

REACTIONS (2)
  - Injection site erythema [None]
  - Peripheral ischaemia [None]
